FAERS Safety Report 8124440-2 (Version None)
Quarter: 2012Q1

REPORT INFORMATION
  Report Type: 
  Country: None (occurrence: None)
  Receive Date: 20120209
  Receipt Date: 20120207
  Transmission Date: 20120608
  Serious: No
  Sender: FDA-Public Use
  Company Number: US-PFIZER INC-2012034658

PATIENT
  Age: 49 Year
  Sex: Male
  Weight: 74.83 kg

DRUGS (3)
  1. CHANTIX [Suspect]
     Dosage: 1 MG, UNK
  2. CHANTIX [Suspect]
     Indication: SMOKING CESSATION THERAPY
     Dosage: 0.5 MG, DAILY
  3. CHANTIX [Suspect]
     Dosage: 0.5 MG, DAILY

REACTIONS (1)
  - DRUG INEFFECTIVE [None]
